FAERS Safety Report 9931435 (Version 1)
Quarter: 2014Q1

REPORT INFORMATION
  Report Type: Spontaneous
  Country: US (occurrence: US)
  Receive Date: 20140228
  Receipt Date: 20140228
  Transmission Date: 20141002
  Serious: Yes (Other)
  Sender: FDA-Public Use
  Company Number: US-AMGEN-USASP2014013072

PATIENT
  Age: 73 Year
  Sex: Female

DRUGS (4)
  1. PROLIA [Suspect]
     Indication: OSTEOPOROSIS POSTMENOPAUSAL
     Dosage: UNK
     Route: 065
  2. CADUET [Concomitant]
  3. QUINAPRIL                          /00810602/ [Concomitant]
  4. PROBIOTICS                         /07325001/ [Concomitant]

REACTIONS (2)
  - Artificial crown procedure [Unknown]
  - Gingival disorder [Unknown]
